FAERS Safety Report 5496867-9 (Version None)
Quarter: 2007Q4

REPORT INFORMATION
  Report Type: 
  Country: None (occurrence: None)
  Receive Date: 20071023
  Receipt Date: 20071023
  Transmission Date: 20080405
  Serious: Yes (Life-Threatening)
  Sender: FDA-Public Use
  Company Number: None

PATIENT

DRUGS (1)
  1. MORPHINE SULFATE ER [Suspect]
     Dates: start: 20070730, end: 20070730

REACTIONS (1)
  - DRUG WITHDRAWAL SYNDROME [None]
